FAERS Safety Report 11409299 (Version 1)
Quarter: 2015Q3

REPORT INFORMATION
  Report Type: Spontaneous
  Country: ES (occurrence: None)
  Receive Date: 20150820
  Receipt Date: 20150820
  Transmission Date: 20151125
  Serious: Yes (Hospitalization)
  Sender: FDA-Public Use
  Company Number: ES-2015INT000501

PATIENT
  Age: 51 Year
  Sex: Female

DRUGS (2)
  1. CREMOPHOR EL [Suspect]
     Active Substance: POLYOXYL 35 CASTOR OIL
     Indication: BREAST CANCER
  2. PACLITAXEL (PACLITAXEL) [Suspect]
     Active Substance: PACLITAXEL
     Indication: BREAST CANCER

REACTIONS (10)
  - Compulsive shopping [None]
  - Disinhibition [None]
  - Irritability [None]
  - Disorientation [None]
  - Indifference [None]
  - Disturbance in social behaviour [None]
  - Inappropriate affect [None]
  - Aggression [None]
  - Personality change [None]
  - Status epilepticus [None]
